FAERS Safety Report 15545986 (Version 2)
Quarter: 2018Q4

REPORT INFORMATION
  Report Type: Spontaneous
  Country: FR (occurrence: FR)
  Receive Date: 20181024
  Receipt Date: 20181105
  Transmission Date: 20190205
  Serious: Yes (Hospitalization, Other)
  Sender: FDA-Public Use
  Company Number: PHHY2018FR134328

PATIENT
  Age: 11 Year
  Sex: Male
  Weight: 37 kg

DRUGS (4)
  1. RIFADINE [Interacting]
     Active Substance: RIFAMPIN
     Indication: STAPHYLOCOCCUS TEST POSITIVE
     Dosage: 300 MG, QD
     Route: 048
     Dates: start: 20120608
  2. RIFADINE [Interacting]
     Active Substance: RIFAMPIN
     Indication: STAPHYLOCOCCUS TEST POSITIVE
  3. METHOTREXATE. [Suspect]
     Active Substance: METHOTREXATE
     Indication: OSTEOSARCOMA
     Dosage: 11 G, 1 CYCLICAL
     Route: 041
     Dates: start: 20120615
  4. FUCIDINE (FUSIDATE SODIUM) [Suspect]
     Active Substance: FUSIDATE SODIUM
     Indication: STAPHYLOCOCCUS TEST POSITIVE
     Dosage: 500 MG, QD
     Route: 048
     Dates: start: 20120608

REACTIONS (3)
  - Leukopenia [Recovered/Resolved]
  - Thrombocytopenia [Recovered/Resolved]
  - Drug interaction [Unknown]

NARRATIVE: CASE EVENT DATE: 20120617
